FAERS Safety Report 9365082 (Version 1)
Quarter: 2013Q2

REPORT INFORMATION
  Report Type: Spontaneous
  Country: US (occurrence: US)
  Receive Date: 20130624
  Receipt Date: 20130624
  Transmission Date: 20140414
  Serious: Yes (Hospitalization, Other)
  Sender: FDA-Public Use
  Company Number: US-JNJFOC-20130609615

PATIENT
  Age: 78 Year
  Sex: Female

DRUGS (2)
  1. XARELTO [Suspect]
     Indication: PULMONARY EMBOLISM
     Dosage: STRENGTH: 10 MG
     Route: 048
     Dates: start: 20130608, end: 20130611
  2. HEPARIN [Suspect]
     Indication: PULMONARY EMBOLISM
     Dosage: FREQUENCY: CONTINUOUS
     Route: 042
     Dates: start: 20130606, end: 201306

REACTIONS (2)
  - Renal failure acute [Recovered/Resolved]
  - Incorrect dose administered [Recovered/Resolved]
